FAERS Safety Report 15099606 (Version 1)
Quarter: 2018Q3

REPORT INFORMATION
  Report Type: Report from Study
  Country: US (occurrence: US)
  Receive Date: 20180702
  Receipt Date: 20180702
  Transmission Date: 20181010
  Serious: Yes (Hospitalization, Other)
  Sender: FDA-Public Use
  Company Number: US-GILEAD-2018-0348292

PATIENT
  Age: 70 Year
  Sex: Female

DRUGS (1)
  1. RANOLAZINE. [Suspect]
     Active Substance: RANOLAZINE
     Indication: ANGINA PECTORIS
     Dosage: 1000 MG, BID
     Route: 048
     Dates: start: 20161020

REACTIONS (9)
  - Back disorder [Not Recovered/Not Resolved]
  - Sepsis [Unknown]
  - Cardiac disorder [Not Recovered/Not Resolved]
  - Knee arthroplasty [Unknown]
  - Cystitis haemorrhagic [Unknown]
  - Pneumonia [Unknown]
  - Cardiac fibrillation [Unknown]
  - Arthritis [Not Recovered/Not Resolved]
  - Renal failure [Unknown]

NARRATIVE: CASE EVENT DATE: 2017
